FAERS Safety Report 7889664-8 (Version None)
Quarter: 2011Q4

REPORT INFORMATION
  Report Type: 
  Country: None (occurrence: None)
  Receive Date: 20111103
  Receipt Date: 20111024
  Transmission Date: 20120403
  Serious: Yes (Other)
  Sender: FDA-Public Use
  Company Number: CHPA2011US15107

PATIENT
  Age: 81 Year
  Sex: Female

DRUGS (1)
  1. TRIAMINIC FLOWING VAPOURS REFILL PAD [Suspect]
     Indication: DYSPNOEA
     Dosage: UNK, QHS

REACTIONS (5)
  - PULMONARY OEDEMA [None]
  - COUGH [None]
  - ASPIRATION PLEURAL CAVITY [None]
  - INCORRECT DRUG ADMINISTRATION DURATION [None]
  - OFF LABEL USE [None]
